FAERS Safety Report 9184528 (Version 1)
Quarter: 2012Q4

REPORT INFORMATION
  Report Type: 
  Country: US (occurrence: US)
  Receive Date: 20121101
  Receipt Date: 20121101
  Transmission Date: 20130627
  Serious: No
  Sender: FDA-Public Use
  Company Number: US-TEVA-365694USA

PATIENT
  Sex: Male

DRUGS (4)
  1. NUVIGIL [Suspect]
     Indication: SLEEP APNOEA SYNDROME
     Dosage: QAM
     Route: 048
     Dates: start: 2012, end: 2012
  2. METOPROLOL [Concomitant]
  3. ALTACE [Concomitant]
  4. ASPIRIN [Concomitant]
     Dosage: one a day

REACTIONS (1)
  - Headache [Recovered/Resolved]
